FAERS Safety Report 7106753-6 (Version None)
Quarter: 2010Q4

REPORT INFORMATION
  Report Type: 
  Country: None (occurrence: None)
  Receive Date: 20101116
  Receipt Date: 20101025
  Transmission Date: 20110411
  Serious: No
  Sender: FDA-Public Use
  Company Number: US-ABBOTT-10P-163-0681282-00

PATIENT
  Sex: Male
  Weight: 112.14 kg

DRUGS (7)
  1. SIMCOR [Suspect]
     Indication: BLOOD TRIGLYCERIDES
     Route: 048
     Dates: start: 20101024
  2. FELODIPINE [Concomitant]
     Indication: HYPERTENSION
     Dosage: NIGHTTIME
     Route: 048
  3. TERAZOCIN [Concomitant]
     Indication: HYPERTENSION
     Route: 048
  4. SOTALOL HCL [Concomitant]
     Indication: HYPERTENSION
     Dosage: 1.5 IN 1 DAY
     Route: 048
  5. ISOSORBIDE DINITRATE [Concomitant]
     Indication: CARDIOVASCULAR DISORDER
     Dosage: 0.5 IN 1 DAY
     Route: 048
  6. NABUMETONE [Concomitant]
     Indication: ARTHRITIS
     Dosage: TAKE W/ASA
     Route: 048
  7. ASPIRIN [Concomitant]
     Indication: CARDIOVASCULAR DISORDER
     Route: 048

REACTIONS (4)
  - DIZZINESS [None]
  - DYSPNOEA [None]
  - FEELING OF BODY TEMPERATURE CHANGE [None]
  - MUSCULAR WEAKNESS [None]
